FAERS Safety Report 9415403 (Version 1)
Quarter: 2013Q3

REPORT INFORMATION
  Report Type: Spontaneous
  Country: US (occurrence: US)
  Receive Date: 20130723
  Receipt Date: 20130723
  Transmission Date: 20140515
  Serious: Yes (Other)
  Sender: FDA-Public Use
  Company Number: US-UCBSA-061530

PATIENT
  Age: 37 Year
  Sex: Female
  Weight: 64.86 kg

DRUGS (6)
  1. CIMZIA [Suspect]
     Indication: CROHN^S DISEASE
     Dates: start: 201204
  2. CIMZIA [Suspect]
     Indication: CROHN^S DISEASE
     Dates: start: 201103, end: 201105
  3. PENTASA [Concomitant]
     Route: 048
  4. PROMETHAZINE [Concomitant]
     Route: 048
  5. PERCOCET [Concomitant]
     Dosage: DOSE :10/650
     Route: 048
  6. AMITRIPTYLINE [Concomitant]
     Dosage: DOSE : 75 MG
     Route: 048
     Dates: end: 20120322

REACTIONS (3)
  - Premature delivery [Unknown]
  - Drug ineffective [Unknown]
  - Pregnancy [Recovered/Resolved]
